FAERS Safety Report 6806052-3 (Version None)
Quarter: 2010Q2

REPORT INFORMATION
  Report Type: 
  Country: None (occurrence: None)
  Receive Date: 20100629
  Receipt Date: 20071210
  Transmission Date: 20101027
  Serious: No
  Sender: FDA-Public Use
  Company Number: US-PFIZER INC-2007103765

PATIENT
  Age: 47 Year
  Sex: Female

DRUGS (1)
  1. METHYLPREDNISOLONE 16MG TAB [Suspect]

REACTIONS (2)
  - CHEST DISCOMFORT [None]
  - DRUG INTOLERANCE [None]
